FAERS Safety Report 25588603 (Version 1)
Quarter: 2025Q3

REPORT INFORMATION
  Report Type: Spontaneous
  Country: JP (occurrence: JP)
  Receive Date: 20250722
  Receipt Date: 20250722
  Transmission Date: 20251020
  Serious: Yes (Hospitalization, Other)
  Sender: Norvium Bioscience
  Company Number: JP-Norvium Bioscience LLC-080430

PATIENT
  Age: 88 Year
  Sex: Female

DRUGS (2)
  1. CARBIDOPA AND LEVODOPA [Suspect]
     Active Substance: CARBIDOPA\LEVODOPA
     Indication: Parkinson^s disease
  2. L DOPA [Suspect]
     Active Substance: LEVODOPA
     Indication: Parkinson^s disease
     Route: 042

REACTIONS (4)
  - Respiratory disorder [Recovered/Resolved]
  - Respiratory acidosis [Recovered/Resolved]
  - Respiratory failure [Recovered/Resolved]
  - Dyskinesia [Recovered/Resolved]
